FAERS Safety Report 20999249 (Version 1)
Quarter: 2022Q2

REPORT INFORMATION
  Report Type: Spontaneous
  Country: US (occurrence: US)
  Receive Date: 20220623
  Receipt Date: 20220623
  Transmission Date: 20220720
  Serious: No
  Sender: FDA-Public Use
  Company Number: US-BAYER-2022A082567

PATIENT

DRUGS (2)
  1. CLARITIN [Suspect]
     Active Substance: LORATADINE
  2. ZYRTEC [Suspect]
     Active Substance: CETIRIZINE HYDROCHLORIDE

REACTIONS (1)
  - Drug resistance [Unknown]
